FAERS Safety Report 19574277 (Version 1)
Quarter: 2021Q3

REPORT INFORMATION
  Report Type: Spontaneous
  Country: US (occurrence: US)
  Receive Date: 20210719
  Receipt Date: 20210719
  Transmission Date: 20211014
  Serious: Yes (Death, Other)
  Sender: FDA-Public Use
  Company Number: US-DRREDDYS-LIT/USA/21/0137800

PATIENT
  Age: 14 Year
  Sex: Female

DRUGS (3)
  1. FENOFIBRATE CAPSULES [Suspect]
     Active Substance: FENOFIBRATE
     Indication: COMPLETED SUICIDE
  2. AMLODIPINE [Suspect]
     Active Substance: AMLODIPINE BESYLATE
     Indication: COMPLETED SUICIDE
  3. COLCHICINE. [Suspect]
     Active Substance: COLCHICINE
     Indication: COMPLETED SUICIDE

REACTIONS (9)
  - Hypotension [Unknown]
  - Vomiting [Unknown]
  - Cardiac arrest [Unknown]
  - Toxicity to various agents [Fatal]
  - Renal impairment [Unknown]
  - Aspiration [Unknown]
  - Lethargy [Unknown]
  - Somnolence [Unknown]
  - Hepatic function abnormal [Unknown]
